FAERS Safety Report 8431437-1 (Version None)
Quarter: 2012Q2

REPORT INFORMATION
  Report Type: 
  Country: None (occurrence: None)
  Receive Date: 20120607
  Receipt Date: 20120607
  Transmission Date: 20120825
  Serious: Yes (Other)
  Sender: FDA-Public Use
  Company Number: None

PATIENT
  Age: 64 Year
  Sex: Male
  Weight: 67.1324 kg

DRUGS (3)
  1. PAROXETINE HCL [Suspect]
     Dosage: 1 TABLET DAILY
  2. ALPRAZOLAM [Suspect]
     Dosage: 2 TABS DAY
  3. TRAZODONE HCL [Suspect]
     Dosage: 2 TQBS AT NIGHT

REACTIONS (7)
  - MIGRAINE [None]
  - WEIGHT DECREASED [None]
  - DECREASED APPETITE [None]
  - INSOMNIA [None]
  - HAEMORRHOIDS [None]
  - PROCTALGIA [None]
  - CONSTIPATION [None]
